FAERS Safety Report 24616308 (Version 3)
Quarter: 2025Q3

REPORT INFORMATION
  Report Type: Spontaneous
  Country: US (occurrence: US)
  Receive Date: 20241114
  Receipt Date: 20250822
  Transmission Date: 20251021
  Serious: Yes (Death, Other)
  Sender: DECIPHERA PHARMACEUTICALS
  Company Number: US-DECIPHERA PHARMACEUTICALS LLC-2024US000932

PATIENT
  Age: 82 Year
  Sex: Female
  Weight: 45.351 kg

DRUGS (2)
  1. QINLOCK [Suspect]
     Active Substance: RIPRETINIB
     Indication: Gastrointestinal stromal tumour
     Dosage: 300 MILLIGRAM, QD
     Dates: start: 20240829
  2. PREDNISONE [Concomitant]
     Active Substance: PREDNISONE
     Indication: Product used for unknown indication

REACTIONS (23)
  - Death [Fatal]
  - Angina pectoris [Unknown]
  - Papilloedema [Unknown]
  - Malignant neoplasm progression [Unknown]
  - Lymphoedema [Unknown]
  - Blister [Unknown]
  - Hypoacusis [Unknown]
  - Glossitis [Unknown]
  - Bedridden [Unknown]
  - Dizziness [Unknown]
  - Palpitations [Unknown]
  - Skin lesion [Unknown]
  - Pain [Unknown]
  - Loss of personal independence in daily activities [Unknown]
  - Fluid retention [Unknown]
  - Abdominal distension [Unknown]
  - Decreased appetite [Unknown]
  - Asthenia [Unknown]
  - Back pain [Unknown]
  - Constipation [Unknown]
  - Stomatitis [Unknown]
  - Fatigue [Unknown]
  - Incorrect dosage administered [Unknown]

NARRATIVE: CASE EVENT DATE: 20240101
